FAERS Safety Report 12977242 (Version 1)
Quarter: 2016Q4

REPORT INFORMATION
  Report Type: Spontaneous
  Country: US (occurrence: US)
  Receive Date: 20161128
  Receipt Date: 20161128
  Transmission Date: 20170207
  Serious: No
  Sender: FDA-Public Use
  Company Number: US-JAZZ-2016-US-018908

PATIENT
  Sex: Female

DRUGS (27)
  1. ACYCLOVIR                          /00587301/ [Concomitant]
     Active Substance: ACYCLOVIR
  2. CYMBALTA [Concomitant]
     Active Substance: DULOXETINE HYDROCHLORIDE
  3. MODAFINIL. [Concomitant]
     Active Substance: MODAFINIL
  4. BACLOFEN. [Concomitant]
     Active Substance: BACLOFEN
  5. NAPROXEN. [Concomitant]
     Active Substance: NAPROXEN
  6. PROMETRIUM [Concomitant]
     Active Substance: PROGESTERONE
  7. SPIRIVA [Concomitant]
     Active Substance: TIOTROPIUM BROMIDE MONOHYDRATE
  8. VITAMIN B12 [Concomitant]
     Active Substance: CYANOCOBALAMIN
  9. TRAZODONE [Concomitant]
     Active Substance: TRAZODONE HYDROCHLORIDE
  10. ATIVAN [Concomitant]
     Active Substance: LORAZEPAM
  11. LAMOTRIGINE. [Concomitant]
     Active Substance: LAMOTRIGINE
  12. VITAMIN D                          /00107901/ [Concomitant]
     Active Substance: ERGOCALCIFEROL
  13. XYREM [Suspect]
     Active Substance: SODIUM OXYBATE
     Indication: NARCOLEPSY
     Dosage: 2.25 G, BID
     Route: 048
     Dates: start: 200603, end: 200712
  14. BIOTIN [Concomitant]
     Active Substance: BIOTIN
  15. LEVOTHYROXINE. [Concomitant]
     Active Substance: LEVOTHYROXINE
  16. TYLENOL EXTRA STRENGTH [Concomitant]
     Active Substance: ACETAMINOPHEN
  17. PROAIR HFA [Concomitant]
     Active Substance: ALBUTEROL SULFATE
  18. CIPRO [Concomitant]
     Active Substance: CIPROFLOXACIN HYDROCHLORIDE
  19. SPIRONOLACTONE. [Concomitant]
     Active Substance: SPIRONOLACTONE
  20. NEURONTIN [Concomitant]
     Active Substance: GABAPENTIN
  21. ROZEREM [Concomitant]
     Active Substance: RAMELTEON
  22. XYREM [Suspect]
     Active Substance: SODIUM OXYBATE
     Dosage: DOSE ADJUSTMENTS
     Route: 048
     Dates: start: 200712, end: 201501
  23. ABILIFY [Concomitant]
     Active Substance: ARIPIPRAZOLE
  24. FOLIC ACID. [Concomitant]
     Active Substance: FOLIC ACID
  25. LORAZEPAM. [Concomitant]
     Active Substance: LORAZEPAM
  26. PROGESTERON [Concomitant]
     Active Substance: PROGESTERONE
  27. XYREM [Suspect]
     Active Substance: SODIUM OXYBATE
     Dosage: 4.5 G, BID
     Route: 048
     Dates: start: 201501

REACTIONS (1)
  - Influenza [Unknown]
